FAERS Safety Report 16201269 (Version 1)
Quarter: 2019Q2

REPORT INFORMATION
  Report Type: Spontaneous
  Country: FR (occurrence: FR)
  Receive Date: 20190416
  Receipt Date: 20190416
  Transmission Date: 20190711
  Serious: Yes (Hospitalization)
  Sender: FDA-Public Use
  Company Number: FR-SUN PHARMACEUTICAL INDUSTRIES LTD-2019RR-205325

PATIENT
  Age: 34 Year
  Sex: Female

DRUGS (6)
  1. PARACETAMOL [Suspect]
     Active Substance: ACETAMINOPHEN
     Indication: ILL-DEFINED DISORDER
     Dosage: DAILY DOSE:  UNKNOWN ()
     Route: 048
  2. PRONTALGINE [CAFFEINE;CODEINE PHOSPHATE HEMIHYDRATE;PARACETAMOL] [Suspect]
     Active Substance: ACETAMINOPHEN\CAFFEINE\CODEINE
     Indication: ILL-DEFINED DISORDER
     Dosage: DAILY DOSE:  UNKNOWN ()
     Route: 048
  3. LAMALINE (ACETAMINOPHEN\BELLADONNA LEAF\CAFFEINE\OPIUM) [Suspect]
     Active Substance: ACETAMINOPHEN\BELLADONNA LEAF\CAFFEINE\OPIUM
     Indication: ILL-DEFINED DISORDER
     Dosage: DAILY DOSE:  UNKNOWN ()
     Route: 054
     Dates: end: 20061113
  4. LAMALINE (ACETAMINOPHEN\BELLADONNA LEAF\CAFFEINE\OPIUM) [Suspect]
     Active Substance: ACETAMINOPHEN\BELLADONNA LEAF\CAFFEINE\OPIUM
     Indication: ILL-DEFINED DISORDER
     Dosage: DAILY DOSE:  UNKNOWN ()
     Route: 054
  5. PARACETAMOL [Suspect]
     Active Substance: ACETAMINOPHEN
     Indication: ILL-DEFINED DISORDER
     Dosage: DAILY DOSE: 9.2 GRAM(S)
     Route: 048
     Dates: end: 20061113
  6. PRONTALGINE [CAFFEINE;CODEINE PHOSPHATE HEMIHYDRATE;PARACETAMOL] [Suspect]
     Active Substance: ACETAMINOPHEN\CAFFEINE\CODEINE
     Dosage: DAILY DOSE: 18 DOSAGE FORM
     Route: 048
     Dates: end: 20061113

REACTIONS (3)
  - Drug withdrawal syndrome [Unknown]
  - Drug abuse [Unknown]
  - Gamma-glutamyltransferase increased [Unknown]

NARRATIVE: CASE EVENT DATE: 2006
